FAERS Safety Report 10499228 (Version 1)
Quarter: 2014Q4

REPORT INFORMATION
  Report Type: Spontaneous
  Country: US (occurrence: US)
  Receive Date: 20141006
  Receipt Date: 20141006
  Transmission Date: 20150528
  Serious: No
  Sender: FDA-Public Use
  Company Number: US-AMGEN INC.-USASP2014026127

PATIENT

DRUGS (2)
  1. XGEVA [Suspect]
     Active Substance: DENOSUMAB
     Indication: PRODUCT USED FOR UNKNOWN INDICATION
     Dosage: Q4WK
     Route: 065
  2. XELODA [Concomitant]
     Active Substance: CAPECITABINE
     Dosage: 6 PILLS A DAY 3000MG FOR 7 DAYS, THEN 7 DAYS OFF

REACTIONS (2)
  - Fatigue [Unknown]
  - Adverse event [Unknown]
